FAERS Safety Report 24952177 (Version 1)
Quarter: 2025Q1

REPORT INFORMATION
  Report Type: Report from Study
  Country: US (occurrence: US)
  Receive Date: 20250210
  Receipt Date: 20250210
  Transmission Date: 20250409
  Serious: Yes (Death)
  Sender: PURDUE
  Company Number: US-PURDUE-USA-2025-0315366

PATIENT
  Age: 59 Year
  Sex: Female

DRUGS (2)
  1. OXYCODONE AND ACETAMINOPHEN [Suspect]
     Active Substance: ACETAMINOPHEN\OXYCODONE HYDROCHLORIDE
     Indication: Product used for unknown indication
     Route: 048
  2. ACETAMINOPHEN [Suspect]
     Active Substance: ACETAMINOPHEN
     Indication: Product used for unknown indication
     Route: 048

REACTIONS (1)
  - Product use issue [Fatal]

NARRATIVE: CASE EVENT DATE: 20230101
